FAERS Safety Report 16717360 (Version 1)
Quarter: 2019Q3

REPORT INFORMATION
  Report Type: Spontaneous
  Country: ES (occurrence: ES)
  Receive Date: 20190819
  Receipt Date: 20190819
  Transmission Date: 20191005
  Serious: No
  Sender: FDA-Public Use
  Company Number: ES-BEH-2019105371

PATIENT
  Age: 34 Year
  Sex: Female

DRUGS (2)
  1. RHOPHYLAC [Suspect]
     Active Substance: HUMAN RHO(D) IMMUNE GLOBULIN
     Dosage: 1 SYRINGE OF 2 MILLILITERS
     Route: 065
  2. RHOPHYLAC [Suspect]
     Active Substance: HUMAN RHO(D) IMMUNE GLOBULIN
     Dosage: 1 SYRINGE OF 2 MILLILITERS
     Route: 065

REACTIONS (3)
  - Product storage error [Unknown]
  - No adverse event [Unknown]
  - Product administration error [Unknown]
